FAERS Safety Report 7110290-2 (Version None)
Quarter: 2010Q4

REPORT INFORMATION
  Report Type: 
  Country: None (occurrence: None)
  Receive Date: 20101117
  Receipt Date: 20101117
  Transmission Date: 20110411
  Serious: No
  Sender: FDA-Public Use
  Company Number: None

PATIENT
  Age: 74 Year
  Sex: Female
  Weight: 64.4108 kg

DRUGS (4)
  1. CYMBALTA [Suspect]
     Indication: DEPRESSION
     Dosage: 30 MG 5-18-10 5-30-10 1 DAILY ORAL 60 MG 5-31-10 8-22-10 1 DAILY ORAL
     Route: 048
     Dates: start: 20100518, end: 20100530
  2. CYMBALTA [Suspect]
     Indication: FIBROMYALGIA
     Dosage: 30 MG 5-18-10 5-30-10 1 DAILY ORAL 60 MG 5-31-10 8-22-10 1 DAILY ORAL
     Route: 048
     Dates: start: 20100518, end: 20100530
  3. CYMBALTA [Suspect]
     Indication: DEPRESSION
     Dosage: 30 MG 5-18-10 5-30-10 1 DAILY ORAL 60 MG 5-31-10 8-22-10 1 DAILY ORAL
     Route: 048
     Dates: start: 20100531, end: 20100822
  4. CYMBALTA [Suspect]
     Indication: FIBROMYALGIA
     Dosage: 30 MG 5-18-10 5-30-10 1 DAILY ORAL 60 MG 5-31-10 8-22-10 1 DAILY ORAL
     Route: 048
     Dates: start: 20100531, end: 20100822

REACTIONS (9)
  - AGITATION [None]
  - ANXIETY [None]
  - DRUG INEFFECTIVE [None]
  - DRY MOUTH [None]
  - HEADACHE [None]
  - HEART RATE INCREASED [None]
  - HYPERHIDROSIS [None]
  - INSOMNIA [None]
  - MUSCLE TWITCHING [None]
